FAERS Safety Report 25269069 (Version 1)
Quarter: 2025Q2

REPORT INFORMATION
  Report Type: Other
  Country: CA (occurrence: CA)
  Receive Date: 20250505
  Receipt Date: 20250505
  Transmission Date: 20250716
  Serious: Yes (Other)
  Sender: PFIZER
  Company Number: CA-PFIZER INC-202500092233

PATIENT

DRUGS (8)
  1. BEVACIZUMAB [Suspect]
     Active Substance: BEVACIZUMAB
     Indication: Colon cancer metastatic
     Route: 065
  2. ASPIRIN [Concomitant]
     Active Substance: ASPIRIN
  3. METHYLPREDNISOLONE [Concomitant]
     Active Substance: METHYLPREDNISOLONE
  4. MYCOPHENOLATE SODIUM [Concomitant]
     Active Substance: MYCOPHENOLATE SODIUM
  5. PREDNISONE [Concomitant]
     Active Substance: PREDNISONE
  6. SIROLIMUS [Concomitant]
     Active Substance: SIROLIMUS
  7. TACROLIMUS [Concomitant]
     Active Substance: TACROLIMUS
  8. FLUOROURACIL\IRINOTECAN\LEUCOVORIN [Concomitant]
     Active Substance: FLUOROURACIL\IRINOTECAN\LEUCOVORIN

REACTIONS (1)
  - Post procedural bile leak [Unknown]
